FAERS Safety Report 12579251 (Version 1)
Quarter: 2016Q3

REPORT INFORMATION
  Report Type: Spontaneous
  Country: GB (occurrence: GB)
  Receive Date: 20160721
  Receipt Date: 20160721
  Transmission Date: 20161109
  Serious: Yes (Other)
  Sender: FDA-Public Use
  Company Number: GB-TEVA-676869ACC

PATIENT
  Sex: Male

DRUGS (3)
  1. AMITRIPTYLINE HYDROCHLORIDE. [Suspect]
     Active Substance: AMITRIPTYLINE HYDROCHLORIDE
     Dosage: UNK
     Route: 048
  2. MIRTAZAPINE. [Suspect]
     Active Substance: MIRTAZAPINE
     Dosage: UNK
     Route: 048
  3. SIMPONI [Suspect]
     Active Substance: GOLIMUMAB
     Dosage: 50 MG, QM
     Route: 058

REACTIONS (6)
  - Osteoarthritis [Unknown]
  - Depression [Unknown]
  - Psoriatic arthropathy [Unknown]
  - Heart rate irregular [Unknown]
  - Erectile dysfunction [Unknown]
  - Headache [Unknown]
